FAERS Safety Report 7213238-5 (Version None)
Quarter: 2010Q4

REPORT INFORMATION
  Report Type: 
  Country: None (occurrence: None)
  Receive Date: 20101229
  Receipt Date: 20101220
  Transmission Date: 20110411
  Serious: Yes (Hospitalization)
  Sender: FDA-Public Use
  Company Number: 2009AL004006

PATIENT
  Age: 65 Year
  Sex: Male
  Weight: 60.5098 kg

DRUGS (7)
  1. METOCLOPRAMIDE TABLETS USP, 10 MG (PUREPAC) (METOCLOPRAMIDE) [Suspect]
     Indication: DYSPEPSIA
     Dates: start: 20090421, end: 20090506
  2. SUNITINIB MALATE [Suspect]
     Indication: HEPATIC NEOPLASM MALIGNANT
     Dosage: 37.5 MG;QD;PO
     Route: 048
     Dates: start: 20081007
  3. HEXAMIDINE (HEXAMIDINE) [Suspect]
     Indication: DENTAL DISORDER PROPHYLAXIS
     Dosage: PO
     Route: 048
     Dates: start: 20081104
  4. LOPERAMIDE [Suspect]
     Indication: DIARRHOEA
     Dates: start: 20090421, end: 20090506
  5. VITAMIN B COMPLEX [Concomitant]
  6. RABEPRAZOLE SODIUM [Concomitant]
  7. PREV MEDS [Concomitant]

REACTIONS (6)
  - DECREASED APPETITE [None]
  - DIARRHOEA [None]
  - HAEMATEMESIS [None]
  - HYPONATRAEMIA [None]
  - ORAL PAIN [None]
  - VARICES OESOPHAGEAL [None]
